FAERS Safety Report 4474495-1 (Version None)
Quarter: 2004Q4

REPORT INFORMATION
  Report Type: 
  Country: None (occurrence: None)
  Receive Date: 20041014
  Receipt Date: 20041007
  Transmission Date: 20050328
  Serious: Yes (Hospitalization)
  Sender: FDA-Public Use
  Company Number: AU-SOLVAY-00204003663

PATIENT
  Age: 21799 Day
  Sex: Male
  Weight: 87 kg

DRUGS (2)
  1. COVERSYL [Suspect]
     Indication: ESSENTIAL HYPERTENSION
     Dosage: DAILY DOSE: 4 MILLIGRAM(S)
     Route: 048
     Dates: start: 20030430, end: 20040706
  2. SIMVASTATIN [Suspect]
     Indication: METABOLIC DISORDER
     Dosage: DAILY DOSE: 10 MILLIGRAM(S)
     Route: 048
     Dates: start: 20030426, end: 20040706

REACTIONS (5)
  - FATIGUE [None]
  - JAUNDICE [None]
  - MALAISE [None]
  - PRURITUS [None]
  - WEIGHT DECREASED [None]
